FAERS Safety Report 7060353-5 (Version None)
Quarter: 2010Q4

REPORT INFORMATION
  Report Type: 
  Country: None (occurrence: None)
  Receive Date: 20101025
  Receipt Date: 20101015
  Transmission Date: 20110411
  Serious: Yes (Hospitalization)
  Sender: FDA-Public Use
  Company Number: B0679323A

PATIENT
  Age: 22 Year
  Sex: Female

DRUGS (1)
  1. ZOVIRAX [Suspect]
     Dosage: 15MGK UNKNOWN
     Route: 065
     Dates: start: 20100917, end: 20100920

REACTIONS (2)
  - OVERDOSE [None]
  - RENAL FAILURE ACUTE [None]
